FAERS Safety Report 15964690 (Version 1)
Quarter: 2019Q1

REPORT INFORMATION
  Report Type: Spontaneous
  Country: US (occurrence: US)
  Receive Date: 20190215
  Receipt Date: 20190215
  Transmission Date: 20190418
  Serious: Yes (Other)
  Sender: FDA-Public Use
  Company Number: US-CIPLA LTD.-2019US00880

PATIENT

DRUGS (3)
  1. GABAPENTIN. [Suspect]
     Active Substance: GABAPENTIN
     Dosage: UNK, WEANED OFF THE MEDICATION
     Route: 065
  2. GABAPENTIN. [Suspect]
     Active Substance: GABAPENTIN
     Indication: NEURALGIA
     Dosage: UNK, 6-7 YEARS AGO
     Route: 065
  3. GABAPENTIN. [Suspect]
     Active Substance: GABAPENTIN
     Dosage: 300 MILLIGRAM, TID (3 TIMES A DAY)
     Route: 048

REACTIONS (5)
  - Aggression [Recovering/Resolving]
  - Anger [Unknown]
  - Vomiting [Unknown]
  - Pain [Unknown]
  - Abnormal behaviour [Recovering/Resolving]
